FAERS Safety Report 16162449 (Version 1)
Quarter: 2019Q2

REPORT INFORMATION
  Report Type: Spontaneous
  Country: PT (occurrence: PT)
  Receive Date: 20190405
  Receipt Date: 20190405
  Transmission Date: 20190711
  Serious: Yes (Hospitalization, Other)
  Sender: FDA-Public Use
  Company Number: PT-AUROBINDO-AUR-APL-2019-017862

PATIENT

DRUGS (2)
  1. GLICLAZIDE [Suspect]
     Active Substance: GLICLAZIDE
     Indication: DIABETES MELLITUS
     Dosage: UNK
     Route: 065
  2. METFORMIN [Suspect]
     Active Substance: METFORMIN HYDROCHLORIDE
     Indication: DIABETES MELLITUS
     Dosage: UNK
     Route: 065

REACTIONS (6)
  - Metabolic disorder [Unknown]
  - Autoimmune pancreatitis [Unknown]
  - Weight decreased [Unknown]
  - Liver abscess [Recovering/Resolving]
  - Sepsis [Recovering/Resolving]
  - Jaundice cholestatic [Unknown]

NARRATIVE: CASE EVENT DATE: 2016
